FAERS Safety Report 15786888 (Version 3)
Quarter: 2019Q1

REPORT INFORMATION
  Report Type: Spontaneous
  Country: GB (occurrence: GB)
  Receive Date: 20190103
  Receipt Date: 20190205
  Transmission Date: 20190417
  Serious: Yes (Hospitalization)
  Sender: FDA-Public Use
  Company Number: GB-MYLANLABS-2018M1096614

PATIENT
  Age: 47 Year
  Sex: Male

DRUGS (1)
  1. CLOZARIL [Suspect]
     Active Substance: CLOZAPINE
     Indication: SCHIZOPHRENIA
     Dosage: UNK
     Route: 048
     Dates: start: 20170713, end: 20181212

REACTIONS (6)
  - Seizure [Unknown]
  - Electrocardiogram QT prolonged [Unknown]
  - White blood cell count decreased [Recovered/Resolved]
  - Bile duct obstruction [Unknown]
  - Mental disorder [Unknown]
  - Neutrophil count decreased [Recovered/Resolved]

NARRATIVE: CASE EVENT DATE: 2018
